FAERS Safety Report 8790267 (Version 1)
Quarter: 2012Q4

REPORT INFORMATION
  Report Type: 
  Country: US (occurrence: US)
  Receive Date: 20120917
  Receipt Date: 20120917
  Transmission Date: 20130627
  Serious: Yes (Other)
  Sender: FDA-Public Use
  Company Number: US-JNJFOC-20120904759

PATIENT
  Sex: Female

DRUGS (5)
  1. REMICADE [Suspect]
     Indication: RHEUMATOID ARTHRITIS
     Route: 042
     Dates: start: 201207
  2. METHOTREXATE [Concomitant]
     Route: 065
  3. NEXIUM [Concomitant]
     Route: 065
  4. LUNESTA [Concomitant]
     Route: 065
  5. SPIRIVA [Concomitant]
     Route: 065

REACTIONS (1)
  - Vision blurred [Recovered/Resolved]
